FAERS Safety Report 18458056 (Version 2)
Quarter: 2021Q1

REPORT INFORMATION
  Report Type: Spontaneous
  Country: US (occurrence: US)
  Receive Date: 20201103
  Receipt Date: 20210312
  Transmission Date: 20210419
  Serious: No
  Sender: FDA-Public Use
  Company Number: US-FARMAPROD-202009-1165

PATIENT
  Age: 73 Year
  Sex: Female
  Weight: 69.55 kg

DRUGS (6)
  1. REFRESH TEARS [Concomitant]
     Active Substance: CARBOXYMETHYLCELLULOSE SODIUM
     Dosage: AT NIGHT
  2. BLOOD SERUM TEAR [Concomitant]
  3. OXERVATE [Suspect]
     Active Substance: CENEGERMIN-BKBJ
     Indication: CORNEAL TRANSPLANT
  4. PREDNISONE. [Concomitant]
     Active Substance: PREDNISONE
  5. ALLERGENIC CAPSULE [Concomitant]
     Route: 047
  6. OXERVATE [Suspect]
     Active Substance: CENEGERMIN-BKBJ
     Indication: KERATITIS
     Route: 047
     Dates: start: 20200821

REACTIONS (3)
  - Periorbital pain [Not Recovered/Not Resolved]
  - Eye pain [Unknown]
  - Intentional product misuse [Unknown]

NARRATIVE: CASE EVENT DATE: 20200824
